FAERS Safety Report 5614961-6 (Version None)
Quarter: 2008Q1

REPORT INFORMATION
  Report Type: 
  Country: None (occurrence: None)
  Receive Date: 20080206
  Receipt Date: 20080128
  Transmission Date: 20080703
  Serious: Yes (Hospitalization)
  Sender: FDA-Public Use
  Company Number: CA-JNJFOC-20080107151

PATIENT
  Sex: Female
  Weight: 59.1 kg

DRUGS (1)
  1. REMICADE [Suspect]
     Indication: RHEUMATOID ARTHRITIS
     Dosage: TOTAL OF 19 DOSES
     Route: 042

REACTIONS (2)
  - HOSPITALISATION [None]
  - PNEUMONIA [None]
